FAERS Safety Report 5221475-4 (Version None)
Quarter: 2007Q1

REPORT INFORMATION
  Report Type: 
  Country: None (occurrence: None)
  Receive Date: 20070126
  Receipt Date: 20070115
  Transmission Date: 20070707
  Serious: Yes (Hospitalization, Other)
  Sender: FDA-Public Use
  Company Number: GB-PFIZER INC-2007004909

PATIENT
  Sex: Female

DRUGS (9)
  1. NEURONTIN [Suspect]
     Indication: NEURALGIA
  2. UNIPHYL [Suspect]
     Route: 048
  3. BRICANYL [Concomitant]
  4. FLIXOTAIDE [Concomitant]
     Route: 055
  5. SERETIDE [Concomitant]
     Route: 055
  6. PREDNISOLONE [Concomitant]
     Route: 048
     Dates: start: 19990101
  7. DURAGESIC-100 [Concomitant]
     Route: 062
  8. PROCHLORPERAZINE MALEATE [Concomitant]
     Route: 048
  9. TELFAST [Concomitant]
     Route: 048

REACTIONS (16)
  - ACNE [None]
  - ASTHMA [None]
  - DRUG LEVEL INCREASED [None]
  - DRUG TOXICITY [None]
  - FIBROMYALGIA [None]
  - GASTROOESOPHAGEAL REFLUX DISEASE [None]
  - HYPERMOBILITY SYNDROME [None]
  - HYPOKALAEMIA [None]
  - INTERVERTEBRAL DISC PROTRUSION [None]
  - MIGRAINE [None]
  - NERVE ROOT COMPRESSION [None]
  - OSTEOPOROSIS [None]
  - RAYNAUD'S PHENOMENON [None]
  - RHINITIS PERENNIAL [None]
  - SCOLIOSIS [None]
  - VOMITING [None]
